FAERS Safety Report 9508651 (Version 1)
Quarter: 2013Q1

REPORT INFORMATION
  Report Type: Spontaneous
  Country: US (occurrence: None)
  Receive Date: 20130305
  Receipt Date: 20130305
  Transmission Date: 20140127
  Serious: Yes (Other)
  Sender: FDA-Public Use
  Company Number: 163-21880-12082231

PATIENT
  Age: 75 Year
  Sex: Female
  Weight: 74.84 kg

DRUGS (15)
  1. REVLIMID (LENALIDOMIDE) (CAPSULES) [Suspect]
     Indication: PLASMA CELL MYELOMA
     Route: 048
     Dates: start: 20051101
  2. AMBIEN (ZOLPIDEM TARTRATE) [Concomitant]
  3. CALTRATE WITH VITAMIN D [Concomitant]
  4. GABAPENTIN [Concomitant]
  5. IRON [Concomitant]
  6. LEVOTHYROXINE [Concomitant]
  7. MELOXICAM [Concomitant]
  8. NEXIUM [Concomitant]
  9. STOOL SOFTENER (DOCUSATE SODIUM) [Concomitant]
  10. VITAMIN B1 (THIAMINE HYDROCHLORIDE) [Concomitant]
  11. VITAMIN B12 (CYANOCOBALAMIN) [Concomitant]
  12. VITAMIN C [Concomitant]
  13. VITAMIN D3 (COLECALCIFEROL) [Concomitant]
  14. ZOMETA (ZOLEDRONIC ACID) [Concomitant]
  15. ZYRTEC (CETIRIZINE HYDROCHLORIDE) [Concomitant]

REACTIONS (2)
  - Biopsy bone marrow abnormal [None]
  - Fatigue [None]
